FAERS Safety Report 6287678-5 (Version None)
Quarter: 2009Q3

REPORT INFORMATION
  Report Type: 
  Country: None (occurrence: None)
  Receive Date: 20090717
  Receipt Date: 20090220
  Transmission Date: 20100115
  Serious: Yes (Other)
  Sender: FDA-Public Use
  Company Number: 2009SP004031

PATIENT
  Age: 85 Year
  Sex: Male

DRUGS (2)
  1. INTEGRILIN [Suspect]
     Indication: DRUG USE FOR UNKNOWN INDICATION
     Dosage: 180 MCG/KG;IMBO
     Route: 040
  2. INTEGRILIN [Suspect]
     Indication: DRUG USE FOR UNKNOWN INDICATION
     Dosage: 2.0 MCG/KG ; IV
     Route: 042

REACTIONS (2)
  - HAEMORRHAGE [None]
  - OVERDOSE [None]
